FAERS Safety Report 7595740-X (Version None)
Quarter: 2011Q3

REPORT INFORMATION
  Report Type: 
  Country: None (occurrence: None)
  Receive Date: 20110707
  Receipt Date: 20110705
  Transmission Date: 20111222
  Serious: Yes (Congenital Anomaly, Other)
  Sender: FDA-Public Use
  Company Number: US-PFIZER INC-2008049751

PATIENT
  Sex: Male
  Weight: 3 kg

DRUGS (1)
  1. ZOLOFT [Suspect]
     Dosage: 50 MG, UNK
     Dates: start: 19930512

REACTIONS (11)
  - HEART DISEASE CONGENITAL [None]
  - HYPERTENSION [None]
  - SINUSITIS [None]
  - PULMONARY ARTERY ATRESIA [None]
  - PHAEOCHROMOCYTOMA [None]
  - MATERNAL EXPOSURE DURING PREGNANCY [None]
  - TRANSPOSITION OF THE GREAT VESSELS [None]
  - ASPLENIA [None]
  - GLOMERULONEPHRITIS [None]
  - RENAL HYPERTROPHY [None]
  - HYPOPLASTIC RIGHT HEART SYNDROME [None]
